FAERS Safety Report 17071852 (Version 7)
Quarter: 2019Q4

REPORT INFORMATION
  Report Type: Spontaneous
  Country: FR (occurrence: FR)
  Receive Date: 20191125
  Receipt Date: 20191217
  Transmission Date: 20200122
  Serious: Yes (Hospitalization, Other)
  Sender: FDA-Public Use
  Company Number: FR-PFIZER INC-2019509202

PATIENT
  Age: 72 Year
  Sex: Male

DRUGS (30)
  1. VALACICLOVIR [Suspect]
     Active Substance: VALACYCLOVIR HYDROCHLORIDE
     Indication: INFECTION PROPHYLAXIS
     Dosage: 500 MG, EVERY 12 HOURS
     Route: 048
     Dates: start: 20191009, end: 20191026
  2. ATARAX [Concomitant]
     Active Substance: HYDROXYZINE HYDROCHLORIDE
     Dosage: 1 DF PM
     Route: 065
     Dates: start: 20191029
  3. CIPROFLOXACIN. [Suspect]
     Active Substance: CIPROFLOXACIN
     Indication: FEBRILE BONE MARROW APLASIA
     Dosage: 500 MG, 1X/DAY
     Route: 048
     Dates: start: 20191011, end: 20191018
  4. KARDEGIC [Suspect]
     Active Substance: ASPIRIN DL-LYSINE
     Dosage: 75 MG, 1X/DAY
     Route: 048
  5. BINOCRIT [Suspect]
     Active Substance: ERYTHROPOIETIN
     Dosage: 30000 IU, EVERY MONDAY
     Route: 058
     Dates: start: 20191021, end: 20191021
  6. POLARAMINE [Concomitant]
     Active Substance: DEXCHLORPHENIRAMINE MALEATE
     Dosage: 1 DF, QD
     Route: 065
     Dates: start: 20191029
  7. LASILIX [FUROSEMIDE] [Concomitant]
     Active Substance: FUROSEMIDE
     Dosage: 20 MG, AM
     Route: 065
     Dates: start: 20191031
  8. ESOMEPRAZOLE MAGNESIUM. [Suspect]
     Active Substance: ESOMEPRAZOLE MAGNESIUM
     Dosage: 20 MG, 1X/DAY
     Route: 048
     Dates: start: 20191015
  9. FLUVASTATIN SODIUM. [Suspect]
     Active Substance: FLUVASTATIN SODIUM
     Dosage: 20 MG, 1X/DAY
     Route: 048
  10. FORLAX [Suspect]
     Active Substance: POLYETHYLENE GLYCOL 4000
     Dosage: 10 G, UNK
     Route: 065
  11. BACTRIM [Suspect]
     Active Substance: SULFAMETHOXAZOLE\TRIMETHOPRIM
     Indication: INFECTION PROPHYLAXIS
     Dosage: 3 DF, 1 TABLET OF 800/160 MG A DAY ON SUNDAY, WEDNESDAY AND FRIDAY)
     Route: 048
     Dates: start: 20190930
  12. TRULICITY [Suspect]
     Active Substance: DULAGLUTIDE
     Dosage: 1 INJECTION OF 1.5 MG ON SUNDAY
     Route: 058
  13. POLARAMINE [Concomitant]
     Active Substance: DEXCHLORPHENIRAMINE MALEATE
     Dosage: 1 DF, QD
     Route: 065
     Dates: start: 20191031
  14. BEPANTHENE [Concomitant]
     Active Substance: DEXPANTHENOL
     Indication: SKIN EXFOLIATION
     Dosage: UNK
     Dates: start: 20191031
  15. RAMIPRIL. [Suspect]
     Active Substance: RAMIPRIL
     Dosage: 2.5 MG, 1X/DAY
     Route: 048
  16. VELMETIA [Suspect]
     Active Substance: METFORMIN\SITAGLIPTIN
     Dosage: 2 DF (1000 MG/50 MG), 1X/DAY
     Route: 048
  17. FOLINORAL [Suspect]
     Active Substance: LEUCOVORIN CALCIUM
     Dosage: 25 MG, 1 TABLET ON SUNDAY
     Route: 048
     Dates: start: 20191026, end: 20191026
  18. LITAK [Suspect]
     Active Substance: CLADRIBINE
     Indication: HAIRY CELL LEUKAEMIA RECURRENT
     Dosage: 11.6 MG, 1X/DAY, 11.60 MG PER DAY FROM D1 TO D5
     Route: 058
     Dates: start: 20190930, end: 20191004
  19. CEFTRIAXONE. [Suspect]
     Active Substance: CEFTRIAXONE
     Indication: ANTIBIOTIC THERAPY
     Dosage: 1 G, 1X/DAY
     Route: 042
     Dates: start: 20191008, end: 20191009
  20. LASILIX [FUROSEMIDE] [Concomitant]
     Active Substance: FUROSEMIDE
     Dosage: 40 MG PM
     Route: 065
     Dates: start: 20191028
  21. PELMEG [Suspect]
     Active Substance: PEGFILGRASTIM
     Indication: NEUTROPENIA
     Dosage: 6 MG, SINGLE
     Route: 058
     Dates: start: 20191007, end: 20191007
  22. ERYTHROPOIETIN [Suspect]
     Active Substance: ERYTHROPOIETIN
     Dosage: UNK
     Route: 065
  23. LASILIX [FUROSEMIDE] [Concomitant]
     Active Substance: FUROSEMIDE
     Dosage: 40 MG, QD (IN THE MORNINGS)
     Dates: start: 20191029
  24. DIAMICRON [Suspect]
     Active Substance: GLICLAZIDE
     Dosage: 60 MG, 1X/DAY
     Route: 048
  25. FOLINORAL [Suspect]
     Active Substance: LEUCOVORIN CALCIUM
     Indication: PROPHYLAXIS
     Dosage: 25 MG, 1 TABLET ON SUNDAY
     Route: 048
     Dates: start: 20190930, end: 20190930
  26. BACTRIM [Suspect]
     Active Substance: SULFAMETHOXAZOLE\TRIMETHOPRIM
     Dosage: 3 DF, 1 TABLET OF 800/160MG A DAY ON SUNDAY, WEDNESDAY AND FRIDAY
     Route: 048
     Dates: start: 20191026, end: 20191026
  27. BINOCRIT [Suspect]
     Active Substance: ERYTHROPOIETIN
     Indication: ANAEMIA
     Dosage: 30000 IU, EVERY MONDAY
     Route: 058
     Dates: start: 20191014
  28. ZARZIO [Suspect]
     Active Substance: FILGRASTIM
     Indication: NEUTROPENIA
     Dosage: 30 MILLION IU, 1X/DAY
     Route: 058
     Dates: start: 20191015, end: 20191020
  29. TAZOCILLINE [Suspect]
     Active Substance: PIPERACILLIN SODIUM\TAZOBACTAM SODIUM
     Indication: FEBRILE BONE MARROW APLASIA
     Dosage: 1 DF, SINGLE 4 G/500 MG
     Route: 042
     Dates: start: 20191008, end: 20191008
  30. PENTACARINAT [Concomitant]
     Active Substance: PENTAMIDINE ISETHIONATE
     Dosage: UNK

REACTIONS (8)
  - Rash [Not Recovered/Not Resolved]
  - Face oedema [Unknown]
  - Anaemia [Unknown]
  - Urinary retention [Unknown]
  - Generalised oedema [Not Recovered/Not Resolved]
  - Pruritus [Recovered/Resolved]
  - Febrile bone marrow aplasia [Not Recovered/Not Resolved]
  - Neutropenia [Unknown]

NARRATIVE: CASE EVENT DATE: 201910
